FAERS Safety Report 11894440 (Version 1)
Quarter: 2016Q1

REPORT INFORMATION
  Report Type: Report from Study
  Country: FR (occurrence: FR)
  Receive Date: 20160107
  Receipt Date: 20160107
  Transmission Date: 20160526
  Serious: Yes (Other)
  Sender: FDA-Public Use
  Company Number: FR-ROCHE-1690228

PATIENT
  Sex: Female
  Weight: 68 kg

DRUGS (5)
  1. BEVACIZUMAB [Suspect]
     Active Substance: BEVACIZUMAB
     Indication: COLORECTAL CANCER METASTATIC
     Dosage: LAST ADMINISTRATION BEFORE SAE WAS ON 19/JUN/2014.
     Route: 065
     Dates: start: 20140206
  2. CALCIUM LEVOFOLINATE [Suspect]
     Active Substance: LEVOLEUCOVORIN CALCIUM
     Indication: COLORECTAL CANCER METASTATIC
     Dosage: LAST ADMINISTRATION RECEIVED BEFORE SAE WAS ON 03/JUL/2014.
     Route: 065
     Dates: start: 20140206
  3. 5-FU [Suspect]
     Active Substance: FLUOROURACIL
     Indication: COLORECTAL CANCER METASTATIC
     Dosage: LAST ADMINISTRATION BEFORE SAE WAS ON 03/JUL/2014.
     Route: 040
     Dates: start: 20140206
  4. IRINOTECAN [Suspect]
     Active Substance: IRINOTECAN
     Indication: COLORECTAL CANCER METASTATIC
     Dosage: LAST ADMINISTRATION BEFORE SAE WAS ON 03/JUL/2014.
     Route: 065
     Dates: start: 20140703
  5. 5-FU [Suspect]
     Active Substance: FLUOROURACIL
     Dosage: LAST ADMINISTRATION RECEIVED BEFORE SAE WAS ON 03/JUL/2014.
     Route: 041
     Dates: start: 20140206

REACTIONS (2)
  - Rectal haemorrhage [Recovered/Resolved]
  - Haemorrhoids [Recovered/Resolved]

NARRATIVE: CASE EVENT DATE: 201407
